FAERS Safety Report 6831095-3 (Version None)
Quarter: 2010Q3

REPORT INFORMATION
  Report Type: 
  Country: None (occurrence: None)
  Receive Date: 20100712
  Receipt Date: 20100702
  Transmission Date: 20110219
  Serious: Yes (Life-Threatening, Disabling)
  Sender: FDA-Public Use
  Company Number: JP-BAYER-200915066BYL

PATIENT
  Age: 60 Year
  Sex: Male
  Weight: 71 kg

DRUGS (2)
  1. NEXAVAR [Suspect]
     Indication: HEPATIC NEOPLASM MALIGNANT
     Dosage: TOTAL DAILY DOSE: 800 MG  UNIT DOSE: 200 MG
     Route: 048
     Dates: start: 20090630
  2. GLIMICRON [Concomitant]
     Dosage: SICE BEFORE NEXAVER ADMINISTRATION
     Route: 048

REACTIONS (6)
  - CEREBRAL INFARCTION [None]
  - DIARRHOEA [None]
  - HYPERTENSION [None]
  - METASTASES TO HEART [None]
  - PALMAR-PLANTAR ERYTHRODYSAESTHESIA SYNDROME [None]
  - STOMATITIS [None]
